FAERS Safety Report 16025174 (Version 1)
Quarter: 2019Q1

REPORT INFORMATION
  Report Type: Spontaneous
  Country: US (occurrence: US)
  Receive Date: 20190301
  Receipt Date: 20190301
  Transmission Date: 20190418
  Serious: No
  Sender: FDA-Public Use
  Company Number: US-SA-2019SA055960

PATIENT
  Age: 43 Year
  Sex: Female

DRUGS (1)
  1. TUBERSOL [Suspect]
     Active Substance: TUBERCULIN PURIFIED PROTEIN DERIVATIVE
     Indication: TUBERCULIN TEST
     Dosage: UNK
     Dates: start: 201703

REACTIONS (6)
  - Dry skin [Unknown]
  - Peripheral swelling [Unknown]
  - Erythema [Unknown]
  - Dermatitis [Unknown]
  - Eczema [Unknown]
  - Pruritus [Unknown]
